FAERS Safety Report 6446312-1 (Version None)
Quarter: 2009Q4

REPORT INFORMATION
  Report Type: 
  Country: None (occurrence: None)
  Receive Date: 20091119
  Receipt Date: 20091116
  Transmission Date: 20100525
  Serious: Yes (Hospitalization)
  Sender: FDA-Public Use
  Company Number: FR-WYE-G04882109

PATIENT
  Sex: Male

DRUGS (4)
  1. TAZOCILLINE [Suspect]
     Indication: LUNG INFECTION
     Route: 042
     Dates: start: 20090530, end: 20090601
  2. TAZOCILLINE [Suspect]
     Indication: PNEUMONIA ASPIRATION
  3. TYGACIL [Suspect]
     Indication: PNEUMONIA ASPIRATION
     Route: 042
     Dates: start: 20090601, end: 20090605
  4. TYGACIL [Suspect]
     Indication: LUNG INFECTION

REACTIONS (3)
  - DERMATITIS EXFOLIATIVE [None]
  - ECZEMA [None]
  - RASH MACULO-PAPULAR [None]
